FAERS Safety Report 8555580-1 (Version None)
Quarter: 2012Q3

REPORT INFORMATION
  Report Type: 
  Country: None (occurrence: None)
  Receive Date: 20120731
  Receipt Date: 20120702
  Transmission Date: 20120928
  Serious: Yes (Disabling, Other)
  Sender: FDA-Public Use
  Company Number: US-ASTRAZENECA-2010SE47879

PATIENT
  Age: 19431 Day
  Sex: Female
  Weight: 72.1 kg

DRUGS (15)
  1. SEROQUEL [Suspect]
     Route: 048
     Dates: start: 20060706
  2. TRIAMTERENE AND HYDROCHLOROTHIAZIDE [Concomitant]
     Dosage: 37.5/25 MG
     Dates: start: 20061228
  3. VAGIFEM [Concomitant]
     Dosage: 25 MCG VAGINAL TABLET
     Dates: start: 20061109
  4. PIROXICAM [Concomitant]
     Dates: start: 20061228
  5. SEROQUEL [Suspect]
     Indication: SLEEP DISORDER
     Route: 048
     Dates: start: 20060601, end: 20080201
  6. LISINOPRIL [Concomitant]
     Dates: start: 20061228
  7. TRIAMTERENE AND HYDROCHLOROTHIAZIDE [Concomitant]
     Dosage: 37.5/25 MG TAKE ONE TABLET BY MOUTH DAILY
     Route: 048
     Dates: start: 20110422
  8. AMANTADINE HCL [Concomitant]
     Indication: DYSKINESIA
  9. SEROQUEL [Suspect]
     Route: 048
     Dates: start: 20060622
  10. XENAZINE [Concomitant]
     Indication: DYSKINESIA
  11. SINEMET [Concomitant]
     Indication: DYSKINESIA
  12. ROPINIROLE [Concomitant]
     Indication: DYSKINESIA
  13. NALTREXONE HYDROCHLORIDE [Concomitant]
     Dates: start: 20060622
  14. LISINOPRIL [Concomitant]
     Route: 048
     Dates: start: 20110422
  15. CLONAZEPAM [Concomitant]
     Indication: AKATHISIA

REACTIONS (3)
  - MOVEMENT DISORDER [None]
  - DYSKINESIA [None]
  - TARDIVE DYSKINESIA [None]
